FAERS Safety Report 6758858-7 (Version None)
Quarter: 2010Q2

REPORT INFORMATION
  Report Type: 
  Country: None (occurrence: None)
  Receive Date: 20100603
  Receipt Date: 20100526
  Transmission Date: 20101027
  Serious: Yes (Other)
  Sender: FDA-Public Use
  Company Number: 010548

PATIENT
  Sex: Female
  Weight: 107.7 kg

DRUGS (13)
  1. CIMZIA [Suspect]
     Indication: CROHN'S DISEASE
     Dosage: (SUBCUTANEOUS)
     Route: 058
     Dates: start: 20091101, end: 20100301
  2. ENTOCORT EC [Concomitant]
  3. COLAZAL [Concomitant]
  4. LEVOTHYROXINE SODIUM [Concomitant]
  5. OMEPRAZOLE [Concomitant]
  6. LEXAPRO [Concomitant]
  7. CALCIUM CARBONATE [Concomitant]
  8. DAILY MULTIVITAMIN [Concomitant]
  9. GLUCOSAMINE [Concomitant]
  10. DAILY MULTIVITAMIN [Concomitant]
  11. DARVOCET-N 100 [Concomitant]
  12. PREDNISONE [Concomitant]
  13. UNKNOWN [Concomitant]

REACTIONS (2)
  - DYSPNOEA [None]
  - MALIGNANT MELANOMA [None]
